FAERS Safety Report 18663168 (Version 1)
Quarter: 2020Q4

REPORT INFORMATION
  Report Type: Report from Study
  Country: CA (occurrence: CA)
  Receive Date: 20201224
  Receipt Date: 20201224
  Transmission Date: 20210114
  Serious: Yes (Hospitalization, Other)
  Sender: FDA-Public Use
  Company Number: CA-SHIRE-CA201930688AA

PATIENT
  Age: 50 Year
  Sex: Female

DRUGS (3)
  1. ICATIBANT [Suspect]
     Active Substance: ICATIBANT ACETATE
     Indication: HEREDITARY ANGIOEDEMA
     Dosage: 30MG/3ML, AS REQ^D
     Route: 058
     Dates: start: 20181104
  2. BERINERT [Concomitant]
     Active Substance: HUMAN C1-ESTERASE INHIBITOR
     Indication: PRODUCT USED FOR UNKNOWN INDICATION
  3. ICATIBANT [Suspect]
     Active Substance: ICATIBANT ACETATE
     Indication: HEREDITARY ANGIOEDEMA
     Dosage: 30MG/3ML, AS REQ^D
     Route: 058
     Dates: start: 20181104

REACTIONS (8)
  - Pulmonary embolism [Unknown]
  - Hereditary angioedema [Unknown]
  - Back disorder [Unknown]
  - Pulmonary thrombosis [Unknown]
  - Colitis [Unknown]
  - Influenza [Unknown]
  - Raynaud^s phenomenon [Unknown]
  - Pericarditis [Unknown]

NARRATIVE: CASE EVENT DATE: 2020
